FAERS Safety Report 9104572 (Version 2)
Quarter: 2013Q1

REPORT INFORMATION
  Report Type: Spontaneous
  Country: JP (occurrence: JP)
  Receive Date: 20130220
  Receipt Date: 20130318
  Transmission Date: 20140127
  Serious: Yes (Hospitalization, Other)
  Sender: FDA-Public Use
  Company Number: JP-ROCHE-1191635

PATIENT
  Age: 78 None
  Sex: Female
  Weight: 46 kg

DRUGS (6)
  1. AVASTIN [Suspect]
     Indication: COLON CANCER METASTATIC
     Route: 041
     Dates: start: 20120322, end: 20120416
  2. XELODA [Suspect]
     Indication: COLON CANCER METASTATIC
     Route: 048
     Dates: start: 20120322, end: 20120430
  3. CAMPTO [Concomitant]
     Indication: COLON CANCER METASTATIC
     Route: 041
     Dates: start: 20120322, end: 20120416
  4. AMLODIN [Concomitant]
     Indication: HYPERTENSION
     Route: 048
  5. MAINTATE [Concomitant]
     Indication: HYPERTENSION
     Route: 048
  6. AMARYL [Concomitant]
     Indication: DIABETES MELLITUS
     Dosage: DOSAGE IS UNCERTAIN.
     Route: 048

REACTIONS (6)
  - Myocardial infarction [Recovered/Resolved]
  - Ventricular tachycardia [Recovered/Resolved]
  - Atrioventricular block complete [Unknown]
  - Acute pulmonary oedema [Unknown]
  - Pericarditis [Recovering/Resolving]
  - Pleural effusion [Recovering/Resolving]
